FAERS Safety Report 4910723-3 (Version None)
Quarter: 2006Q1

REPORT INFORMATION
  Report Type: 
  Country: None (occurrence: None)
  Receive Date: 20060214
  Receipt Date: 20060202
  Transmission Date: 20060701
  Serious: Yes (Other)
  Sender: FDA-Public Use
  Company Number: PHEH2006US01629

PATIENT
  Sex: Female

DRUGS (2)
  1. RITALIN LA [Suspect]
     Dates: start: 20030101
  2. BUPROPION [Concomitant]
     Dosage: 450 MG, QD

REACTIONS (2)
  - DRUG INEFFECTIVE [None]
  - GASTRIC BYPASS [None]
